FAERS Safety Report 7832847-3 (Version None)
Quarter: 2011Q4

REPORT INFORMATION
  Report Type: 
  Country: None (occurrence: None)
  Receive Date: 20111024
  Receipt Date: 20111014
  Transmission Date: 20120403
  Serious: No
  Sender: FDA-Public Use
  Company Number: US-BIOGENIDEC-2011BI039366

PATIENT
  Age: 52 Year
  Sex: Female

DRUGS (1)
  1. AVONEX [Suspect]
     Indication: MULTIPLE SCLEROSIS
     Route: 030
     Dates: start: 20091220

REACTIONS (9)
  - IRRITABILITY [None]
  - MEMORY IMPAIRMENT [None]
  - BURNOUT SYNDROME [None]
  - INSOMNIA [None]
  - BLOOD GLUCOSE INCREASED [None]
  - HYPERTONIC BLADDER [None]
  - FOOT FRACTURE [None]
  - SOMNOLENCE [None]
  - FEELING HOT [None]
